FAERS Safety Report 18545023 (Version 31)
Quarter: 2025Q2

REPORT INFORMATION
  Report Type: Report from Study
  Country: US (occurrence: US)
  Receive Date: 20201125
  Receipt Date: 20250411
  Transmission Date: 20250717
  Serious: Yes (Death, Hospitalization, Other)
  Sender: TAKEDA
  Company Number: US-TAKEDA-2020TUS045543

PATIENT
  Age: 85 Year
  Sex: Female
  Weight: 69 kg

DRUGS (65)
  1. HUMAN IMMUNOGLOBULIN G\HYALURONIDASE RECOMBINANT HUMAN [Suspect]
     Active Substance: HUMAN IMMUNOGLOBULIN G\HYALURONIDASE (HUMAN RECOMBINANT)
     Indication: Congenital hypogammaglobulinaemia
     Dosage: 27.5 GRAM, Q4WEEKS
     Dates: start: 20180805
  2. HUMAN IMMUNOGLOBULIN G\HYALURONIDASE RECOMBINANT HUMAN [Suspect]
     Active Substance: HUMAN IMMUNOGLOBULIN G\HYALURONIDASE (HUMAN RECOMBINANT)
     Indication: Immunodeficiency common variable
     Dosage: 27.5 GRAM, Q4WEEKS
     Dates: start: 20180830
  3. HUMAN IMMUNOGLOBULIN G\HYALURONIDASE RECOMBINANT HUMAN [Suspect]
     Active Substance: HUMAN IMMUNOGLOBULIN G\HYALURONIDASE (HUMAN RECOMBINANT)
     Indication: Primary immunodeficiency syndrome
  4. HUMAN IMMUNOGLOBULIN G\HYALURONIDASE RECOMBINANT HUMAN [Suspect]
     Active Substance: HUMAN IMMUNOGLOBULIN G\HYALURONIDASE (HUMAN RECOMBINANT)
     Dosage: 25 GRAM, Q4WEEKS
  5. IBUPROFEN [Suspect]
     Active Substance: IBUPROFEN
     Indication: Product used for unknown indication
  6. DIPHENHYDRAMINE HYDROCHLORIDE [Concomitant]
     Active Substance: DIPHENHYDRAMINE HYDROCHLORIDE
  7. SODIUM CHLORIDE [Concomitant]
     Active Substance: SODIUM CHLORIDE
     Indication: Product used for unknown indication
  8. EPINEPHRINE [Concomitant]
     Active Substance: EPINEPHRINE
  9. NEXIUM [Concomitant]
     Active Substance: ESOMEPRAZOLE MAGNESIUM
  10. AZITHROMYCIN [Concomitant]
     Active Substance: AZITHROMYCIN
  11. KETOROLAC TROMETHAMINE [Concomitant]
     Active Substance: KETOROLAC TROMETHAMINE
  12. BRIMONIDINE TARTRATE [Concomitant]
     Active Substance: BRIMONIDINE TARTRATE
  13. VICODIN ES [Concomitant]
     Active Substance: ACETAMINOPHEN\HYDROCODONE BITARTRATE
  14. DETROL [Concomitant]
     Active Substance: TOLTERODINE TARTRATE
  15. SPIRIVA [Concomitant]
     Active Substance: TIOTROPIUM BROMIDE MONOHYDRATE
  16. BISOPROLOL FUMARATE [Concomitant]
     Active Substance: BISOPROLOL FUMARATE
  17. CELEBREX [Concomitant]
     Active Substance: CELECOXIB
  18. MONTELUKAST SODIUM [Concomitant]
     Active Substance: MONTELUKAST SODIUM
  19. DIOVAN HCT [Concomitant]
     Active Substance: HYDROCHLOROTHIAZIDE\VALSARTAN
  20. LORAZEPAM [Concomitant]
     Active Substance: LORAZEPAM
  21. ASPIRIN [Concomitant]
     Active Substance: ASPIRIN
  22. VENTOLIN HFA [Concomitant]
     Active Substance: ALBUTEROL SULFATE
  23. LEVOTHYROXINE SODIUM [Concomitant]
     Active Substance: LEVOTHYROXINE SODIUM
  24. SIMVASTATIN [Concomitant]
     Active Substance: SIMVASTATIN
  25. QVAR REDIHALER [Concomitant]
     Active Substance: BECLOMETHASONE DIPROPIONATE
  26. GABAPENTIN [Concomitant]
     Active Substance: GABAPENTIN
  27. VENTOLIN [Concomitant]
     Active Substance: ALBUTEROL SULFATE
  28. FLUTICASONE PROPIONATE [Concomitant]
     Active Substance: FLUTICASONE PROPIONATE
  29. HYDROCODONE [Concomitant]
     Active Substance: HYDROCODONE
  30. VITAMINS [Concomitant]
     Active Substance: VITAMINS
  31. DIOVAN [Concomitant]
     Active Substance: VALSARTAN
  32. ALBUTEROL SULFATE [Concomitant]
     Active Substance: ALBUTEROL SULFATE
  33. ATORVASTATIN CALCIUM [Concomitant]
     Active Substance: ATORVASTATIN CALCIUM
  34. CLOPIDOGREL [Concomitant]
     Active Substance: CLOPIDOGREL BISULFATE
  35. ACETAMINOPHEN [Concomitant]
     Active Substance: ACETAMINOPHEN
  36. LOTEPREDNOL ETABONATE [Concomitant]
     Active Substance: LOTEPREDNOL ETABONATE
  37. POTASSIUM CHLORIDE [Concomitant]
     Active Substance: POTASSIUM CHLORIDE
  38. FUROSEMIDE [Concomitant]
     Active Substance: FUROSEMIDE
  39. AMIODARONE HYDROCHLORIDE [Concomitant]
     Active Substance: AMIODARONE HYDROCHLORIDE
  40. METFORMIN HYDROCHLORIDE [Concomitant]
     Active Substance: METFORMIN HYDROCHLORIDE
  41. GUAIFENESIN [Concomitant]
     Active Substance: GUAIFENESIN
  42. HYDROCHLOROTHIAZIDE\VALSARTAN [Concomitant]
     Active Substance: HYDROCHLOROTHIAZIDE\VALSARTAN
  43. FEXOFENADINE HYDROCHLORIDE [Concomitant]
     Active Substance: FEXOFENADINE HYDROCHLORIDE
  44. PANTOPRAZOLE SODIUM [Concomitant]
     Active Substance: PANTOPRAZOLE SODIUM
  45. ACETAMINOPHEN\HYDROCODONE [Concomitant]
     Active Substance: ACETAMINOPHEN\HYDROCODONE
  46. ALBUTEROL\IPRATROPIUM [Concomitant]
     Active Substance: ALBUTEROL\IPRATROPIUM
  47. SUCRALFATE [Concomitant]
     Active Substance: SUCRALFATE
  48. PREMARIN [Concomitant]
     Active Substance: ESTROGENS, CONJUGATED
  49. ONDANSETRON HYDROCHLORIDE [Concomitant]
     Active Substance: ONDANSETRON HYDROCHLORIDE
  50. BENZONATATE [Concomitant]
     Active Substance: BENZONATATE
  51. BRIMONIDINE [Concomitant]
     Active Substance: BRIMONIDINE TARTRATE
  52. DOCUSATE SODIUM [Concomitant]
     Active Substance: DOCUSATE SODIUM
  53. ALLEGRA ALLERGY [Concomitant]
     Active Substance: FEXOFENADINE HYDROCHLORIDE
  54. ESOMEPRAZOLE MAGNESIUM [Concomitant]
     Active Substance: ESOMEPRAZOLE MAGNESIUM
  55. LASIX [Concomitant]
     Active Substance: FUROSEMIDE
  56. ELIQUIS [Concomitant]
     Active Substance: APIXABAN
  57. TRELEGY ELLIPTA [Concomitant]
     Active Substance: FLUTICASONE FUROATE\UMECLIDINIUM BROMIDE\VILANTEROL TRIFENATATE
  58. ATIVAN [Concomitant]
     Active Substance: LORAZEPAM
  59. CARAFATE [Concomitant]
     Active Substance: SUCRALFATE
  60. MIRALAX [Concomitant]
     Active Substance: POLYETHYLENE GLYCOL 3350
  61. AZELASTINE HYDROCHLORIDE [Concomitant]
     Active Substance: AZELASTINE HYDROCHLORIDE
  62. NYSTATIN [Concomitant]
     Active Substance: NYSTATIN
  63. TIZANIDINE HYDROCHLORIDE [Concomitant]
     Active Substance: TIZANIDINE HYDROCHLORIDE
  64. FERROUS SULFATE [Concomitant]
     Active Substance: FERROUS SULFATE
  65. PREDNISONE [Concomitant]
     Active Substance: PREDNISONE

REACTIONS (49)
  - Cardiac failure congestive [Fatal]
  - Chronic obstructive pulmonary disease [Fatal]
  - Urinary tract infection [Unknown]
  - Pleural effusion [Unknown]
  - Bradycardia [Unknown]
  - Mass [Unknown]
  - Haemoglobin abnormal [Unknown]
  - Gait disturbance [Unknown]
  - Cellulitis [Unknown]
  - Atrial fibrillation [Unknown]
  - Cardiac disorder [Unknown]
  - Abdominal pain [Unknown]
  - Gastrointestinal disorder [Unknown]
  - Urinary tract disorder [Unknown]
  - Pneumonia [Unknown]
  - Haemorrhage [Unknown]
  - Haemoglobin decreased [Unknown]
  - Cystitis interstitial [Unknown]
  - Fall [Unknown]
  - Patella fracture [Unknown]
  - Upper respiratory tract infection [Unknown]
  - Limb injury [Unknown]
  - Joint injury [Unknown]
  - Endoscopy abnormal [Unknown]
  - Drug hypersensitivity [Unknown]
  - Abdominal discomfort [Unknown]
  - Implant site pain [Unknown]
  - Cystitis [Unknown]
  - Inappropriate schedule of product administration [Unknown]
  - Muscular weakness [Unknown]
  - Chest discomfort [Recovering/Resolving]
  - Infusion site discolouration [Recovered/Resolved]
  - Abdominal distension [Recovering/Resolving]
  - Infusion site pain [Recovered/Resolved]
  - Pyrexia [Unknown]
  - Infusion site erythema [Unknown]
  - Infusion site oedema [Unknown]
  - Dysuria [Unknown]
  - Weight decreased [Unknown]
  - Sciatica [Unknown]
  - Skin atrophy [Unknown]
  - Heart rate decreased [Recovering/Resolving]
  - Nasopharyngitis [Unknown]
  - Infection [Unknown]
  - Cough [Unknown]
  - Malaise [Unknown]
  - Pruritus [Unknown]
  - Nausea [Unknown]
  - Fatigue [Unknown]

NARRATIVE: CASE EVENT DATE: 20210201
